FAERS Safety Report 5735997-0 (Version None)
Quarter: 2008Q2

REPORT INFORMATION
  Report Type: 
  Country: None (occurrence: None)
  Receive Date: 20080513
  Receipt Date: 20080509
  Transmission Date: 20081010
  Serious: Yes (Other)
  Sender: FDA-Public Use
  Company Number: CH-BRISTOL-MYERS SQUIBB COMPANY-14136006

PATIENT
  Age: 48 Year
  Sex: Female

DRUGS (14)
  1. ABILIFY [Interacting]
     Indication: SCHIZOPHRENIA
     Route: 048
     Dates: start: 20071212
  2. ABILIFY [Interacting]
     Indication: AFFECTIVE DISORDER
     Route: 048
     Dates: start: 20071212
  3. REYATAZ [Interacting]
     Indication: HIV INFECTION
     Dosage: 150MG, 1X2
  4. LORAZEPAM [Suspect]
  5. EFFEXOR [Suspect]
     Dosage: 4-0-0
  6. CONCERTA [Suspect]
     Dosage: 1-0-0
  7. TRUVADA [Concomitant]
     Dosage: 1*1
  8. NORVIR [Concomitant]
     Dosage: 1X1.
  9. ALDACTONE [Concomitant]
  10. ACETAMINOPHEN [Concomitant]
  11. METOCLOPRAMIDE HYDROCHLORIDE [Concomitant]
  12. DIFLUCAN [Concomitant]
  13. BECOZYM [Concomitant]
  14. MAGNESIUM CITRATE [Concomitant]

REACTIONS (4)
  - BLOOD CREATINE PHOSPHOKINASE INCREASED [None]
  - DRUG INTERACTION [None]
  - MUSCULAR WEAKNESS [None]
  - MYOGLOBIN BLOOD INCREASED [None]
